FAERS Safety Report 9326354 (Version 4)
Quarter: 2013Q3

REPORT INFORMATION
  Report Type: Report from Study
  Country: JP (occurrence: JP)
  Receive Date: 20130604
  Receipt Date: 20130729
  Transmission Date: 20140515
  Serious: Yes (Other)
  Sender: FDA-Public Use
  Company Number: JP-ROCHE-1230363

PATIENT
  Age: 71 Year
  Sex: Male
  Weight: 58 kg

DRUGS (8)
  1. RITUXIMAB [Suspect]
     Indication: DIFFUSE LARGE B-CELL LYMPHOMA
     Dosage: DOSE CONCENTRATION: 1 MG/ML; VOLUME: 607.5 ML) CYCLE 8 DAY 1
     Route: 042
     Dates: start: 20120314, end: 20120807
  2. CYCLOPHOSPHAMIDE [Suspect]
     Indication: DIFFUSE LARGE B-CELL LYMPHOMA
     Dosage: LAST DOSE PRIOR TO EVENT ON 26/JUN/2012 (1215 MG)
     Route: 042
     Dates: start: 20120314
  3. DOXORUBICIN [Suspect]
     Indication: DIFFUSE LARGE B-CELL LYMPHOMA
     Dosage: LAST DOSE PRIOR TO EVENT ON 26/JUN/2012 (81 MG)
     Route: 042
     Dates: start: 20120314
  4. VINCRISTINE [Suspect]
     Indication: DIFFUSE LARGE B-CELL LYMPHOMA
     Dosage: LAST DOSE PRIOR TO EVENT ON 26/JUN/2012 (2 MG)
     Route: 040
     Dates: start: 20120314
  5. PREDNISOLONE [Suspect]
     Indication: DIFFUSE LARGE B-CELL LYMPHOMA
     Dosage: LAST DOSE PRIOR TO EVENT ON 30/JUN/2012 (100 MG)
     Route: 065
     Dates: start: 20120314
  6. BETAMETHASONE BUTYRATE PROPIONATE [Concomitant]
     Indication: PSORIASIS
  7. CALCIPOTRIOL [Concomitant]
     Indication: PSORIASIS
  8. ENTECAVIR HYDRATE [Concomitant]
     Indication: HEPATITIS B
     Route: 065
     Dates: start: 20120524

REACTIONS (1)
  - Colorectal cancer [Recovered/Resolved]
